FAERS Safety Report 14160134 (Version 1)
Quarter: 2017Q4

REPORT INFORMATION
  Report Type: Report from Study
  Country: EE (occurrence: EE)
  Receive Date: 20171106
  Receipt Date: 20171106
  Transmission Date: 20180321
  Serious: Yes (Hospitalization)
  Sender: FDA-Public Use
  Company Number: EE-ROCHE-1342538

PATIENT
  Age: 44 Year
  Sex: Male
  Weight: 105 kg

DRUGS (67)
  1. OCRELIZUMAB. [Suspect]
     Active Substance: OCRELIZUMAB
     Dosage: WEEK 192
     Route: 042
     Dates: start: 20170516, end: 20170516
  2. PARACETAMOL [Concomitant]
     Active Substance: ACETAMINOPHEN
     Route: 065
     Dates: start: 20130909
  3. PARACETAMOL [Concomitant]
     Active Substance: ACETAMINOPHEN
     Route: 065
     Dates: start: 20130924
  4. PARACETAMOL [Concomitant]
     Active Substance: ACETAMINOPHEN
     Route: 065
     Dates: start: 20150127
  5. METHYLPREDNISOLONE. [Concomitant]
     Active Substance: METHYLPREDNISOLONE
     Route: 065
     Dates: start: 20120410, end: 20120410
  6. METHYLPREDNISOLONE. [Concomitant]
     Active Substance: METHYLPREDNISOLONE
     Route: 065
     Dates: start: 20130312, end: 20130312
  7. METHYLPREDNISOLONE. [Concomitant]
     Active Substance: METHYLPREDNISOLONE
     Route: 065
     Dates: start: 20130909, end: 20130909
  8. METHYLPREDNISOLONE. [Concomitant]
     Active Substance: METHYLPREDNISOLONE
     Route: 065
     Dates: start: 20140812, end: 20140812
  9. LORATIN [Concomitant]
     Active Substance: LORATADINE
     Route: 065
     Dates: start: 20130909
  10. BETALOC ZOK [Concomitant]
     Active Substance: METOPROLOL SUCCINATE
     Route: 065
     Dates: start: 2001
  11. FLUX (FLUOXETINE) [Concomitant]
     Route: 065
     Dates: start: 20120103, end: 20120409
  12. FLUX (FLUOXETINE) [Concomitant]
     Route: 065
     Dates: start: 20120410
  13. ESSENTIAL FORTE (POLYENEPHOSPHATIDYL CHOLINE) [Concomitant]
     Route: 065
     Dates: start: 20140131, end: 20140311
  14. OCRELIZUMAB. [Suspect]
     Active Substance: OCRELIZUMAB
     Indication: RELAPSING-REMITTING MULTIPLE SCLEROSIS
     Route: 042
     Dates: start: 20111025, end: 20130909
  15. OCRELIZUMAB. [Suspect]
     Active Substance: OCRELIZUMAB
     Dosage: WEEK 96
     Route: 042
     Dates: start: 20150727, end: 20150727
  16. OCRELIZUMAB. [Suspect]
     Active Substance: OCRELIZUMAB
     Dosage: WEEK 168
     Route: 042
     Dates: start: 20161129, end: 20161129
  17. PARACETAMOL [Concomitant]
     Active Substance: ACETAMINOPHEN
     Route: 065
     Dates: start: 20111025
  18. PARACETAMOL [Concomitant]
     Active Substance: ACETAMINOPHEN
     Route: 065
     Dates: start: 20120925
  19. METHYLPREDNISOLONE. [Concomitant]
     Active Substance: METHYLPREDNISOLONE
     Route: 065
     Dates: start: 20130924, end: 20130924
  20. METHYLPREDNISOLONE. [Concomitant]
     Active Substance: METHYLPREDNISOLONE
     Route: 065
     Dates: start: 20140225, end: 20140225
  21. LORATIN [Concomitant]
     Active Substance: LORATADINE
     Route: 065
     Dates: start: 20150727
  22. SOLU-MEDROL [Concomitant]
     Active Substance: METHYLPREDNISOLONE SODIUM SUCCINATE
     Route: 065
     Dates: start: 20111108
  23. OCRELIZUMAB. [Suspect]
     Active Substance: OCRELIZUMAB
     Indication: RELAPSING-REMITTING MULTIPLE SCLEROSIS
     Dosage: WEEK 0
     Route: 042
     Dates: start: 20130909, end: 20130909
  24. OCRELIZUMAB. [Suspect]
     Active Substance: OCRELIZUMAB
     Dosage: WEEK 24
     Route: 042
     Dates: start: 20140225, end: 20140225
  25. OCRELIZUMAB. [Suspect]
     Active Substance: OCRELIZUMAB
     Dosage: WEEK 48
     Route: 042
     Dates: start: 20140812, end: 20140812
  26. OCRELIZUMAB. [Suspect]
     Active Substance: OCRELIZUMAB
     Dosage: WEEK 120
     Route: 042
     Dates: start: 20160105, end: 20160105
  27. PARACETAMOL [Concomitant]
     Active Substance: ACETAMINOPHEN
     Route: 065
     Dates: start: 20160105
  28. METHYLPREDNISOLONE. [Concomitant]
     Active Substance: METHYLPREDNISOLONE
     Route: 065
     Dates: start: 20111108, end: 20111108
  29. CO-PRENESSA [Concomitant]
     Route: 065
     Dates: start: 20111216
  30. METHYLPREDNISOLONE. [Concomitant]
     Active Substance: METHYLPREDNISOLONE
     Route: 065
     Dates: start: 20160614, end: 20160614
  31. LORATIN [Concomitant]
     Active Substance: LORATADINE
     Route: 065
     Dates: start: 20120925
  32. LORATIN [Concomitant]
     Active Substance: LORATADINE
     Route: 065
     Dates: start: 20150127
  33. SOLU-MEDROL [Concomitant]
     Active Substance: METHYLPREDNISOLONE SODIUM SUCCINATE
     Route: 065
     Dates: start: 20120828, end: 20120830
  34. OCRELIZUMAB. [Suspect]
     Active Substance: OCRELIZUMAB
     Dosage: WEEK 144
     Route: 042
     Dates: start: 20160614, end: 20160614
  35. PARACETAMOL [Concomitant]
     Active Substance: ACETAMINOPHEN
     Route: 065
     Dates: start: 20120410
  36. METHYLPREDNISOLONE. [Concomitant]
     Active Substance: METHYLPREDNISOLONE
     Route: 065
     Dates: start: 20150727, end: 20150727
  37. METHYLPREDNISOLONE. [Concomitant]
     Active Substance: METHYLPREDNISOLONE
     Route: 065
     Dates: start: 20160105, end: 20160105
  38. METHYLPREDNISOLONE. [Concomitant]
     Active Substance: METHYLPREDNISOLONE
     Route: 065
     Dates: start: 20170516, end: 20170516
  39. LORATIN [Concomitant]
     Active Substance: LORATADINE
     Route: 065
     Dates: start: 20111108
  40. LORATIN [Concomitant]
     Active Substance: LORATADINE
     Route: 065
     Dates: start: 20120410
  41. LORATIN [Concomitant]
     Active Substance: LORATADINE
     Route: 065
     Dates: start: 20130924
  42. LORATIN [Concomitant]
     Active Substance: LORATADINE
     Route: 065
     Dates: start: 20161129
  43. AMLODIPINE [Concomitant]
     Active Substance: AMLODIPINE BESYLATE
     Route: 065
     Dates: start: 20110909, end: 20111215
  44. ESSENTIAL FORTE (POLYENEPHOSPHATIDYL CHOLINE) [Concomitant]
     Route: 065
     Dates: start: 20140312, end: 20160616
  45. PARACETAMOL [Concomitant]
     Active Substance: ACETAMINOPHEN
     Route: 065
     Dates: start: 20111108
  46. METHYLPREDNISOLONE. [Concomitant]
     Active Substance: METHYLPREDNISOLONE
     Route: 065
     Dates: start: 20150630, end: 20150702
  47. SOLU-MEDROL [Concomitant]
     Active Substance: METHYLPREDNISOLONE SODIUM SUCCINATE
     Route: 065
     Dates: start: 20120614, end: 20120615
  48. PLACEBO [Suspect]
     Active Substance: UNSPECIFIED INGREDIENT
     Indication: RELAPSING-REMITTING MULTIPLE SCLEROSIS
     Dosage: LAST DOSE PRIOR TO SAE WAS 06/SEP/2013.
     Route: 058
     Dates: start: 20111025, end: 20130906
  49. PARACETAMOL [Concomitant]
     Active Substance: ACETAMINOPHEN
     Route: 065
     Dates: start: 20140225
  50. PARACETAMOL [Concomitant]
     Active Substance: ACETAMINOPHEN
     Route: 065
     Dates: start: 20140812
  51. PARACETAMOL [Concomitant]
     Active Substance: ACETAMINOPHEN
     Route: 065
     Dates: start: 20150727
  52. PARACETAMOL [Concomitant]
     Active Substance: ACETAMINOPHEN
     Route: 065
     Dates: start: 20160614
  53. PARACETAMOL [Concomitant]
     Active Substance: ACETAMINOPHEN
     Route: 065
     Dates: start: 20170516
  54. METHYLPREDNISOLONE. [Concomitant]
     Active Substance: METHYLPREDNISOLONE
     Route: 065
     Dates: start: 20111025, end: 20111025
  55. METHYLPREDNISOLONE. [Concomitant]
     Active Substance: METHYLPREDNISOLONE
     Route: 065
     Dates: start: 20150127, end: 20150127
  56. METHYLPREDNISOLONE. [Concomitant]
     Active Substance: METHYLPREDNISOLONE
     Route: 065
     Dates: start: 20161129, end: 20161129
  57. LORATIN [Concomitant]
     Active Substance: LORATADINE
     Route: 065
     Dates: start: 20160614
  58. FLUX (FLUOXETINE) [Concomitant]
     Route: 065
     Dates: start: 20120703
  59. OCRELIZUMAB. [Suspect]
     Active Substance: OCRELIZUMAB
     Dosage: WEEK 2
     Route: 042
     Dates: start: 20130924, end: 20130924
  60. OCRELIZUMAB. [Suspect]
     Active Substance: OCRELIZUMAB
     Dosage: WEEK 72
     Route: 042
     Dates: start: 20150127, end: 20150127
  61. PARACETAMOL [Concomitant]
     Active Substance: ACETAMINOPHEN
     Route: 065
     Dates: start: 20130312
  62. METHYLPREDNISOLONE. [Concomitant]
     Active Substance: METHYLPREDNISOLONE
     Route: 065
     Dates: start: 20120925, end: 20120925
  63. LORATIN [Concomitant]
     Active Substance: LORATADINE
     Route: 065
     Dates: start: 20130312
  64. LORATIN [Concomitant]
     Active Substance: LORATADINE
     Route: 065
     Dates: start: 20140225
  65. LORATIN [Concomitant]
     Active Substance: LORATADINE
     Route: 065
     Dates: start: 20140812
  66. LORATIN [Concomitant]
     Active Substance: LORATADINE
     Route: 065
     Dates: start: 20150105
  67. LORATIN [Concomitant]
     Active Substance: LORATADINE
     Route: 065
     Dates: start: 20170516

REACTIONS (1)
  - Alanine aminotransferase increased [Recovered/Resolved]

NARRATIVE: CASE EVENT DATE: 20140107
